FAERS Safety Report 5423559-4 (Version None)
Quarter: 2007Q3

REPORT INFORMATION
  Report Type: 
  Country: None (occurrence: None)
  Receive Date: 20070821
  Receipt Date: 20070821
  Transmission Date: 20080115
  Serious: Yes (Other)
  Sender: FDA-Public Use
  Company Number: None

PATIENT
  Sex: Female
  Weight: 78.4723 kg

DRUGS (6)
  1. XYREM [Suspect]
     Indication: NARCOLEPSY
     Dosage: 4.5GM OR 9 ML BID P.O.
     Route: 048
     Dates: start: 20070101, end: 20070816
  2. PROVIGIL [Concomitant]
  3. WELLBUTRIN XL [Concomitant]
  4. ABILIFY [Concomitant]
  5. LEXAPRO [Concomitant]
  6. PREMPRO [Concomitant]

REACTIONS (6)
  - CONTUSION [None]
  - DIZZINESS [None]
  - FALL [None]
  - FOOT FRACTURE [None]
  - SKIN LACERATION [None]
  - SOMNOLENCE [None]
